FAERS Safety Report 9070361 (Version 2)
Quarter: 2013Q1

REPORT INFORMATION
  Report Type: Spontaneous
  Country: US (occurrence: US)
  Receive Date: 20130215
  Receipt Date: 20130226
  Transmission Date: 20140127
  Serious: No
  Sender: FDA-Public Use
  Company Number: US-PFIZER INC-2013036227

PATIENT
  Sex: Female

DRUGS (5)
  1. DIFLUCAN [Suspect]
     Dosage: UNK
  2. CORTEF [Suspect]
     Dosage: UNK
  3. FLAGYL [Suspect]
     Dosage: UNK
  4. LYRICA [Suspect]
     Dosage: UNK
  5. MYCOBUTIN [Suspect]
     Dosage: UNK

REACTIONS (1)
  - Nervous system disorder [Unknown]
